FAERS Safety Report 15526189 (Version 7)
Quarter: 2023Q1

REPORT INFORMATION
  Report Type: Spontaneous
  Country: US (occurrence: None)
  Receive Date: 20181018
  Receipt Date: 20230203
  Transmission Date: 20230417
  Serious: Yes (Death, Other)
  Sender: FDA-Public Use
  Company Number: 2018SF31509

PATIENT
  Age: 26620 Day
  Sex: Female
  Weight: 93.3 kg

DRUGS (35)
  1. NEXIUM [Suspect]
     Active Substance: ESOMEPRAZOLE MAGNESIUM
     Indication: Gastric pH
     Route: 048
     Dates: start: 2001, end: 2002
  2. NEXIUM [Suspect]
     Active Substance: ESOMEPRAZOLE MAGNESIUM
     Indication: Gastric pH
     Dosage: 40.0MG UNKNOWN
     Route: 048
     Dates: start: 200108, end: 200205
  3. NEXIUM [Suspect]
     Active Substance: ESOMEPRAZOLE MAGNESIUM
     Indication: Gastric pH
     Dosage: UNKNOWN
     Route: 048
     Dates: start: 2009, end: 2014
  4. NEXIUM [Suspect]
     Active Substance: ESOMEPRAZOLE MAGNESIUM
     Indication: Gastric pH
     Dosage: 40.0MG UNKNOWN
     Route: 048
     Dates: start: 200906
  5. NEXIUM [Suspect]
     Active Substance: ESOMEPRAZOLE MAGNESIUM
     Indication: Gastric pH
     Dosage: 40.0MG UNKNOWN
     Route: 048
     Dates: start: 201303, end: 201305
  6. NEXIUM [Suspect]
     Active Substance: ESOMEPRAZOLE MAGNESIUM
     Indication: Gastric pH
     Dosage: 40.0MG UNKNOWN
     Route: 048
     Dates: start: 201411
  7. JANUMET [Concomitant]
     Active Substance: METFORMIN HYDROCHLORIDE\SITAGLIPTIN PHOSPHATE
     Indication: Diabetes mellitus
     Dates: start: 2013
  8. ZETIA [Concomitant]
     Active Substance: EZETIMIBE
  9. LISINOPRIL [Concomitant]
     Active Substance: LISINOPRIL
  10. LOVASTATIN [Concomitant]
     Active Substance: LOVASTATIN
  11. FENOFIBRATE [Concomitant]
     Active Substance: FENOFIBRATE
  12. FLUVIRIN NOS [Concomitant]
     Active Substance: INFLUENZA VIRUS VACCINE
  13. ZOCOR [Concomitant]
     Active Substance: SIMVASTATIN
     Dates: start: 20020227
  14. GLUCOPHAGE [Concomitant]
     Active Substance: METFORMIN HYDROCHLORIDE
     Dates: start: 20020227
  15. HYZAAR [Concomitant]
     Active Substance: HYDROCHLOROTHIAZIDE\LOSARTAN POTASSIUM
     Dates: start: 20020227
  16. GLIPIZIDE [Concomitant]
     Active Substance: GLIPIZIDE
  17. TRAMADOL [Concomitant]
     Active Substance: TRAMADOL
  18. FUROSEMIDE [Concomitant]
     Active Substance: FUROSEMIDE
  19. TAGAMET [Concomitant]
     Active Substance: CIMETIDINE
  20. LYRICA [Concomitant]
     Active Substance: PREGABALIN
  21. LIVALO [Concomitant]
     Active Substance: PITAVASTATIN CALCIUM
     Dates: start: 20131106
  22. DETROL [Concomitant]
     Active Substance: TOLTERODINE TARTRATE
  23. PRAVASTATIN [Concomitant]
     Active Substance: PRAVASTATIN
  24. CIPROFLOXACIN [Concomitant]
     Active Substance: CIPROFLOXACIN
     Dates: start: 20131106
  25. TOUJEO [Concomitant]
     Active Substance: INSULIN GLARGINE
     Indication: Diabetes mellitus
     Dates: start: 2016
  26. HUMALOG [Concomitant]
     Active Substance: INSULIN LISPRO
     Indication: Diabetes mellitus
     Dates: start: 2016
  27. NYSTATIN [Concomitant]
     Active Substance: NYSTATIN
     Indication: Fungal infection
     Dates: start: 2014
  28. KETOCONAZOLE [Concomitant]
     Active Substance: KETOCONAZOLE
     Indication: Fungal infection
     Dates: start: 2014
  29. ROPINIROLE [Concomitant]
     Active Substance: ROPINIROLE
     Indication: Restless legs syndrome
     Dates: start: 2014
  30. ASPIRIN [Concomitant]
     Active Substance: ASPIRIN
     Indication: Pain
     Dates: start: 1993
  31. VITAMIN D [Concomitant]
     Active Substance: VITAMIN D NOS
     Indication: Blood calcium decreased
     Dates: start: 1993
  32. FLUTICASONE [Concomitant]
     Active Substance: FLUTICASONE
     Dates: start: 20131106
  33. PITAVASTATIN [Concomitant]
     Active Substance: PITAVASTATIN
     Dates: start: 20131106
  34. LOVASTATIN [Concomitant]
     Active Substance: LOVASTATIN
  35. VESICARE [Concomitant]
     Active Substance: SOLIFENACIN SUCCINATE
     Dates: start: 20141028

REACTIONS (8)
  - Renal failure [Fatal]
  - Chronic kidney disease [Not Recovered/Not Resolved]
  - End stage renal disease [Unknown]
  - Nephrogenic anaemia [Unknown]
  - Hyperparathyroidism secondary [Unknown]
  - Renal tubular necrosis [Unknown]
  - Acute kidney injury [Unknown]
  - Renal impairment [Unknown]

NARRATIVE: CASE EVENT DATE: 20141122
